FAERS Safety Report 5806209-4 (Version None)
Quarter: 2008Q3

REPORT INFORMATION
  Report Type: 
  Country: None (occurrence: None)
  Receive Date: 20080709
  Receipt Date: 20080709
  Transmission Date: 20090109
  Serious: Yes (Disabling)
  Sender: FDA-Public Use
  Company Number: None

PATIENT
  Sex: Male

DRUGS (2)
  1. MARCAINE [Suspect]
     Indication: JOINT INSTABILITY
     Dosage: 300 CC 014
     Dates: start: 20040308
  2. MARCAINE [Suspect]
     Indication: LIGAMENT RUPTURE
     Dosage: 300 CC 014
     Dates: start: 20040308

REACTIONS (1)
  - CHONDROLYSIS [None]
